FAERS Safety Report 6746120-8 (Version None)
Quarter: 2010Q2

REPORT INFORMATION
  Report Type: 
  Country: None (occurrence: None)
  Receive Date: 20100528
  Receipt Date: 20091120
  Transmission Date: 20101027
  Serious: No
  Sender: FDA-Public Use
  Company Number: US-ASTRAZENECA-2009SE27866

PATIENT
  Age: 81 Year
  Sex: Male

DRUGS (5)
  1. PRILOSEC [Suspect]
     Route: 048
  2. PLAVIX [Suspect]
     Indication: MYOCARDIAL INFARCTION
     Dates: start: 20090801
  3. ASPIRIN [Suspect]
  4. BETA BLOCKING AGENT [Suspect]
  5. CHOLESTEROL [Suspect]

REACTIONS (1)
  - CONTUSION [None]
